FAERS Safety Report 7651147-8 (Version None)
Quarter: 2011Q3

REPORT INFORMATION
  Report Type: 
  Country: None (occurrence: None)
  Receive Date: 20110727
  Receipt Date: 20110713
  Transmission Date: 20111222
  Serious: Yes (Hospitalization)
  Sender: FDA-Public Use
  Company Number: DSM-2011-00700

PATIENT
  Age: 87 Year
  Sex: Female

DRUGS (8)
  1. FUNGIZONE (AMPHOTERICIN B) (AMPHOTERICIN B) [Concomitant]
  2. CETIRIZINE (CETIRIZINE HYDROCHLORIDE) (CETIRIZINE HYDROCHLORIDE) [Concomitant]
  3. TOPLEXIL (OXOMEMAZINE) (OXOMEMAZINE) [Suspect]
     Indication: PRODUCTIVE COUGH
     Dosage: ORAL
     Route: 048
     Dates: start: 20110316, end: 20110316
  4. SEVIKAR (OLMESARTAN MEDOXOMIL, AMLODIPINE BESILATE) (TABLET) (OLMESART [Suspect]
     Indication: ESSENTIAL HYPERTENSION
     Dosage: SEE IMAGE
     Route: 048
     Dates: start: 20110316, end: 20110316
  5. NASONEX [Concomitant]
  6. TOPALGIC (TRAMADOL HYDROCHLORIDE) (TRAMADOL HYDROCHLORIDE) [Concomitant]
  7. LOXEN (NICARDIPINE HYDROCHLORIDE (NICARDIPINE HYDROCHLORIDE) [Concomitant]
  8. COVERSYL (PERINODOPRIL) (PERINODOPRIL) [Concomitant]

REACTIONS (6)
  - VISION BLURRED [None]
  - DIZZINESS [None]
  - LOSS OF CONSCIOUSNESS [None]
  - FALL [None]
  - HEAD INJURY [None]
  - MALAISE [None]
